FAERS Safety Report 20190279 (Version 3)
Quarter: 2022Q1

REPORT INFORMATION
  Report Type: Spontaneous
  Country: US (occurrence: US)
  Receive Date: 20211215
  Receipt Date: 20220116
  Transmission Date: 20220423
  Serious: No
  Sender: FDA-Public Use
  Company Number: US-JNJFOC-20211206763

PATIENT
  Age: 64 Year
  Sex: Male

DRUGS (2)
  1. TREMFYA [Suspect]
     Active Substance: GUSELKUMAB
     Indication: Product used for unknown indication
     Dosage: 100 MG/ML
     Route: 065
     Dates: start: 20211201
  2. TREMFYA [Suspect]
     Active Substance: GUSELKUMAB
     Route: 065
     Dates: start: 20211214

REACTIONS (6)
  - Device issue [Recovered/Resolved]
  - Accidental exposure to product [Unknown]
  - Product dose omission issue [Unknown]
  - Back pain [Unknown]
  - Insomnia [Unknown]
  - Irritability [Unknown]

NARRATIVE: CASE EVENT DATE: 20211201
